FAERS Safety Report 8063462-7 (Version None)
Quarter: 2012Q1

REPORT INFORMATION
  Report Type: 
  Country: None (occurrence: None)
  Receive Date: 20120117
  Receipt Date: 20120103
  Transmission Date: 20120608
  Serious: Yes (Death)
  Sender: FDA-Public Use
  Company Number: B0773465A

PATIENT
  Age: 25 Year
  Sex: Female

DRUGS (4)
  1. ALPRAZOLAM [Suspect]
     Dosage: ORAL
     Route: 048
  2. CITALOPRAM (FORMULATION UNKNOWN) (GENERIC) (CITALOPRAM) [Suspect]
     Dosage: ORAL
     Route: 048
  3. CARBAMAZEPINE [Suspect]
     Dosage: ORAL
     Route: 048
  4. LAMOTRIGINE [Suspect]
     Dosage: ORAL
     Route: 048

REACTIONS (2)
  - COMPLETED SUICIDE [None]
  - CARDIO-RESPIRATORY ARREST [None]
